FAERS Safety Report 13905893 (Version 1)
Quarter: 2017Q3

REPORT INFORMATION
  Report Type: Report from Study
  Country: CA (occurrence: CA)
  Receive Date: 20170825
  Receipt Date: 20170825
  Transmission Date: 20171127
  Serious: Yes (Other)
  Sender: FDA-Public Use
  Company Number: CA-GLAXOSMITHKLINE-CA2017GSK118188

PATIENT
  Age: 45 Year
  Sex: Male

DRUGS (1)
  1. MEPOLIZUMAB [Suspect]
     Active Substance: MEPOLIZUMAB
     Indication: ASTHMA
     Dosage: 100 MG, Z,  MONTHLY
     Route: 042
     Dates: start: 20170628

REACTIONS (6)
  - Dyspepsia [Unknown]
  - Chest discomfort [Unknown]
  - Myocardial infarction [Unknown]
  - Fatigue [Unknown]
  - Palpitations [Unknown]
  - Asthenia [Unknown]

NARRATIVE: CASE EVENT DATE: 20170725
